FAERS Safety Report 7348455-7 (Version None)
Quarter: 2011Q1

REPORT INFORMATION
  Report Type: 
  Country: None (occurrence: None)
  Receive Date: 20110313
  Receipt Date: 20110216
  Transmission Date: 20110831
  Serious: No
  Sender: FDA-Public Use
  Company Number: US-B.I. PHARMACEUTICALS,INC./RIDGEFIELD-2008-BP-13915BP

PATIENT
  Sex: Male

DRUGS (8)
  1. IMDUR [Concomitant]
     Indication: ARRHYTHMIA
     Dosage: 75 MG
     Dates: start: 19860101
  2. SPIRIVA [Suspect]
     Indication: CHRONIC OBSTRUCTIVE PULMONARY DISEASE
     Dosage: 18 MCG
     Route: 055
     Dates: start: 20080401
  3. MAXZIDE [Concomitant]
     Indication: ARRHYTHMIA
     Dosage: 75 MG
     Dates: start: 19860101
  4. COMBIVENT [Suspect]
     Dosage: VARIES
  5. NITRO-BID [Concomitant]
     Dosage: 27 MG
  6. LOPRESSOR [Concomitant]
     Indication: ARRHYTHMIA
     Dosage: 75 MG
     Dates: start: 19860101
  7. CARDIZEM [Concomitant]
     Indication: ARRHYTHMIA
     Dosage: 240 MG
     Dates: start: 19860101
  8. ZOCOR [Concomitant]
     Dosage: 80 MG

REACTIONS (3)
  - GENITAL RASH [None]
  - DRUG SCREEN POSITIVE [None]
  - FATIGUE [None]
